FAERS Safety Report 7599874-5 (Version None)
Quarter: 2011Q3

REPORT INFORMATION
  Report Type: 
  Country: None (occurrence: None)
  Receive Date: 20110711
  Receipt Date: 20110705
  Transmission Date: 20111222
  Serious: No
  Sender: FDA-Public Use
  Company Number: US-PFIZER INC-2011153372

PATIENT
  Age: 53 Year
  Sex: Male
  Weight: 86.2 kg

DRUGS (4)
  1. LYRICA [Suspect]
     Indication: NEURALGIA
     Dosage: UNK
     Route: 048
     Dates: start: 20110501, end: 20110101
  2. METHADONE [Concomitant]
     Dosage: UNK
  3. LYRICA [Suspect]
     Indication: PAIN IN EXTREMITY
  4. PREDNISOLONE [Suspect]
     Dosage: UNK
     Dates: end: 20110101

REACTIONS (5)
  - PAIN [None]
  - HEPATIC ENZYME INCREASED [None]
  - RESTLESSNESS [None]
  - FEELING ABNORMAL [None]
  - INSOMNIA [None]
